FAERS Safety Report 8405691-6 (Version None)
Quarter: 2012Q2

REPORT INFORMATION
  Report Type: 
  Country: None (occurrence: None)
  Receive Date: 20120604
  Receipt Date: 20120521
  Transmission Date: 20120825
  Serious: Yes (Death, Hospitalization, Other)
  Sender: FDA-Public Use
  Company Number: GB-RANBAXY-2012R1-55282

PATIENT
  Age: 55 Year
  Sex: Female
  Weight: 146 kg

DRUGS (9)
  1. BENDROFLUMETHIAZIDE [Concomitant]
     Indication: HYPERTENSION
     Dosage: UNK
     Route: 048
  2. IBUPROFEN [Concomitant]
     Indication: HEADACHE
     Dosage: 400 MG, PRN
     Route: 048
  3. FLUOXETINE [Suspect]
     Indication: DEPRESSION
     Dosage: UNK
     Route: 048
     Dates: end: 20120301
  4. IRBESARTAN [Concomitant]
     Indication: HYPERTENSION
     Dosage: UNK
     Route: 048
  5. EFFEXOR [Suspect]
     Dosage: UNK
     Route: 065
  6. EFFEXOR [Suspect]
     Dosage: UNK
     Route: 048
     Dates: start: 20120109
  7. IBUPROFEN [Concomitant]
     Indication: PAIN
  8. EFFEXOR [Suspect]
     Indication: DEPRESSION
     Dosage: UNK
     Route: 065
     Dates: start: 20120208
  9. METFORMIN HCL [Concomitant]
     Indication: OBESITY
     Dosage: 500 MG, BID
     Route: 048

REACTIONS (2)
  - MENORRHAGIA [None]
  - HYPERPLASIA [None]
